FAERS Safety Report 11318262 (Version 2)
Quarter: 2015Q3

REPORT INFORMATION
  Report Type: Spontaneous
  Country: US (occurrence: US)
  Receive Date: 20150728
  Receipt Date: 20150811
  Transmission Date: 20151125
  Serious: No
  Sender: FDA-Public Use
  Company Number: PHEH2015US011638

PATIENT
  Sex: Female

DRUGS (1)
  1. EXELON PATCH [Suspect]
     Active Substance: RIVASTIGMINE
     Indication: PRODUCT USED FOR UNKNOWN INDICATION
     Dosage: 4.6 MG (PATCH 9 MG/5 CM2), QD
     Route: 062
     Dates: start: 20150320

REACTIONS (3)
  - Incorrect drug administration duration [Unknown]
  - Product adhesion issue [Unknown]
  - Application site pruritus [Recovering/Resolving]
